FAERS Safety Report 9891410 (Version 2)
Quarter: 2014Q1

REPORT INFORMATION
  Report Type: Spontaneous
  Country: US (occurrence: CA)
  Receive Date: 20140212
  Receipt Date: 20140306
  Transmission Date: 20141002
  Serious: No
  Sender: FDA-Public Use
  Company Number: US-PFIZER INC-2014037598

PATIENT
  Age: 72 Year
  Sex: Female

DRUGS (6)
  1. XELJANZ [Suspect]
     Indication: PAIN
     Dosage: 5 MG, 2X/DAY
     Route: 048
     Dates: start: 201306
  2. XELJANZ [Suspect]
     Indication: RHEUMATOID ARTHRITIS
     Dosage: DECREASED DOSE
     Route: 048
  3. CELEBREX [Concomitant]
     Indication: RHEUMATOID ARTHRITIS
     Dosage: 200 MG, 1X/DAY
  4. ASA [Concomitant]
     Indication: CARDIAC DISORDER
     Dosage: 81 MG, 1X/DAY
  5. RANITIDINE [Concomitant]
     Dosage: 150 MG, 1X/DAY
  6. LEXAPRO [Concomitant]
     Indication: DEPRESSION
     Dosage: 150 MG

REACTIONS (5)
  - Off label use [Unknown]
  - Abdominal discomfort [Unknown]
  - Therapeutic product ineffective for unapproved indication [Unknown]
  - Gastritis [Recovered/Resolved]
  - Gastroenteritis viral [Unknown]
